FAERS Safety Report 6935227-8 (Version None)
Quarter: 2010Q3

REPORT INFORMATION
  Report Type: 
  Country: None (occurrence: None)
  Receive Date: 20100822
  Receipt Date: 20100818
  Transmission Date: 20110219
  Serious: Yes (Hospitalization)
  Sender: FDA-Public Use
  Company Number: PHHO2010SE10166

PATIENT
  Sex: Male
  Weight: 61 kg

DRUGS (1)
  1. ALISKIREN ALI+TAB [Suspect]
     Indication: ACUTE MYOCARDIAL INFARCTION
     Dosage: 300 MG, QD
     Route: 048
     Dates: start: 20090305

REACTIONS (6)
  - CARDIAC FAILURE [None]
  - DISEASE PROGRESSION [None]
  - DYSPNOEA [None]
  - HYPOXIA [None]
  - RALES [None]
  - TACHYPNOEA [None]
